FAERS Safety Report 5979781-1 (Version None)
Quarter: 2008Q4

REPORT INFORMATION
  Report Type: 
  Country: None (occurrence: None)
  Receive Date: 20081204
  Receipt Date: 20080219
  Transmission Date: 20090506
  Serious: No
  Sender: FDA-Public Use
  Company Number: US-AMGEN-KDL266242

PATIENT
  Sex: Female

DRUGS (3)
  1. ENBREL [Suspect]
     Indication: RHEUMATOID ARTHRITIS
     Route: 058
     Dates: start: 20070315
  2. PLAQUENIL [Concomitant]
     Route: 048
     Dates: start: 20030201
  3. METHOTREXATE [Concomitant]
     Route: 048
     Dates: start: 19960201

REACTIONS (6)
  - ANIMAL BITE [None]
  - CONTUSION [None]
  - FALL [None]
  - HYPOAESTHESIA [None]
  - OROPHARYNGEAL PAIN [None]
  - PARAESTHESIA [None]
